FAERS Safety Report 6688640-0 (Version None)
Quarter: 2010Q2

REPORT INFORMATION
  Report Type: 
  Country: None (occurrence: None)
  Receive Date: 20100420
  Receipt Date: 20100419
  Transmission Date: 20101027
  Serious: Yes (Hospitalization)
  Sender: FDA-Public Use
  Company Number: A0775120A

PATIENT
  Age: 46 Year
  Sex: Male

DRUGS (1)
  1. AVANDIA [Suspect]
     Indication: DIABETES MELLITUS
     Dosage: 8MG PER DAY
     Route: 048
     Dates: start: 20030101, end: 20080301

REACTIONS (6)
  - ANGINA PECTORIS [None]
  - ARTERIOSPASM CORONARY [None]
  - CARDIAC DISORDER [None]
  - CONDITION AGGRAVATED [None]
  - CORONARY ARTERY DISEASE [None]
  - DEPRESSION [None]
